FAERS Safety Report 8477435-3 (Version None)
Quarter: 2012Q2

REPORT INFORMATION
  Report Type: 
  Country: None (occurrence: None)
  Receive Date: 20120629
  Receipt Date: 20120622
  Transmission Date: 20120825
  Serious: Yes (Other)
  Sender: FDA-Public Use
  Company Number: PHFR2012GB003385

PATIENT
  Sex: Male

DRUGS (1)
  1. CLOZARIL [Suspect]
     Indication: SCHIZOPHRENIA
     Route: 048
     Dates: start: 20120523, end: 20120609

REACTIONS (8)
  - UPPER RESPIRATORY TRACT INFECTION [None]
  - PYREXIA [None]
  - INFLUENZA LIKE ILLNESS [None]
  - BLOOD PRESSURE FLUCTUATION [None]
  - NEUROLEPTIC MALIGNANT SYNDROME [None]
  - BLOOD CREATINE PHOSPHOKINASE INCREASED [None]
  - OROPHARYNGEAL PAIN [None]
  - PLATELET COUNT DECREASED [None]
